FAERS Safety Report 22056682 (Version 1)
Quarter: 2023Q1

REPORT INFORMATION
  Report Type: Spontaneous
  Country: US (occurrence: US)
  Receive Date: 20230302
  Receipt Date: 20230302
  Transmission Date: 20230418
  Serious: No
  Sender: FDA-Public Use
  Company Number: US-ABBVIE-4298615

PATIENT
  Sex: Female

DRUGS (1)
  1. HUMIRA [Suspect]
     Active Substance: ADALIMUMAB
     Indication: Colitis ulcerative
     Route: 058
     Dates: end: 202212

REACTIONS (5)
  - Infection [Unknown]
  - Chest discomfort [Unknown]
  - Arthralgia [Unknown]
  - Costochondritis [Unknown]
  - Malaise [Unknown]

NARRATIVE: CASE EVENT DATE: 20220101
